FAERS Safety Report 23177436 (Version 1)
Quarter: 2023Q4

REPORT INFORMATION
  Report Type: Spontaneous
  Country: NL (occurrence: NL)
  Receive Date: 20231113
  Receipt Date: 20231113
  Transmission Date: 20240109
  Serious: Yes (Other)
  Sender: FDA-Public Use
  Company Number: NL-TEVA-2023-NL-2937904

PATIENT
  Age: 24 Year
  Sex: Female

DRUGS (5)
  1. ISOTRETINOIN [Interacting]
     Active Substance: ISOTRETINOIN
     Indication: Acne
     Dosage: UNK
     Route: 065
  2. CANRENONE [Interacting]
     Active Substance: CANRENONE
     Indication: Product used for unknown indication
     Dosage: UNK,  1.3MG AND 1.6MG PER CAPSULE
     Route: 065
  3. CANRENONE [Interacting]
     Active Substance: CANRENONE
     Dosage: 1.6 MILLIGRAM, 1.3MG AND 1.6MG PER CAPSULE
     Route: 065
  4. SIBUTRAMINE [Interacting]
     Active Substance: SIBUTRAMINE
     Indication: Product used for unknown indication
     Dosage: 14.3 MILLIGRAM, DOSE: 14.3MG AND 24.3MG PER CAPSULE
     Route: 065
  5. SIBUTRAMINE [Interacting]
     Active Substance: SIBUTRAMINE
     Dosage: 24.3 MILLIGRAM, DOSE: 14.3MG AND 24.3MG PER CAPSULE
     Route: 065

REACTIONS (10)
  - Insomnia [Recovering/Resolving]
  - Sleep deficit [Recovering/Resolving]
  - Vomiting [Recovering/Resolving]
  - Hallucination, auditory [Recovering/Resolving]
  - Renal impairment [Recovering/Resolving]
  - Dizziness [Recovering/Resolving]
  - Anxiety [Recovering/Resolving]
  - Nausea [Recovering/Resolving]
  - Headache [Recovering/Resolving]
  - Drug interaction [Recovering/Resolving]
